FAERS Safety Report 20554646 (Version 2)
Quarter: 2022Q3

REPORT INFORMATION
  Report Type: Spontaneous
  Country: TR (occurrence: TR)
  Receive Date: 20220304
  Receipt Date: 20220707
  Transmission Date: 20221027
  Serious: Yes (Other)
  Sender: FDA-Public Use
  Company Number: TR-MLMSERVICE-20220216-3377342-1

PATIENT

DRUGS (2)
  1. SOMATROPIN [Suspect]
     Active Substance: SOMATROPIN
     Indication: Growth retardation
     Dosage: 42 UG/KG, 1 TIME DAILY
     Route: 065
  2. LEVOTHYROXINE [Concomitant]
     Active Substance: LEVOTHYROXINE
     Indication: Hypothyroidism
     Dosage: 12.5 UG, 1 TIME DAILY
     Route: 065

REACTIONS (6)
  - Hyperlipidaemia [Unknown]
  - Blood insulin increased [Unknown]
  - Insulin-like growth factor increased [Unknown]
  - Insulin resistance [Unknown]
  - Glucose tolerance impaired [Unknown]
  - Product use in unapproved indication [Unknown]
